FAERS Safety Report 5862714-6 (Version None)
Quarter: 2008Q3

REPORT INFORMATION
  Report Type: 
  Country: None (occurrence: None)
  Receive Date: 20080828
  Receipt Date: 20080821
  Transmission Date: 20090109
  Serious: Yes (Other)
  Sender: FDA-Public Use
  Company Number: US-JNJFOC-20071106228

PATIENT
  Sex: Female
  Weight: 75.75 kg

DRUGS (3)
  1. ORTHO EVRA [Suspect]
     Indication: DRUG USE FOR UNKNOWN INDICATION
     Route: 062
  2. SEASONALE [Suspect]
     Indication: MENSTRUATION IRREGULAR
     Route: 048
  3. SEASONALE [Suspect]
     Indication: CONTRACEPTION
     Route: 048

REACTIONS (2)
  - INFERTILITY [None]
  - MENORRHAGIA [None]
